FAERS Safety Report 7389489-6 (Version None)
Quarter: 2011Q2

REPORT INFORMATION
  Report Type: 
  Country: None (occurrence: None)
  Receive Date: 20110401
  Receipt Date: 20110318
  Transmission Date: 20111010
  Serious: Yes (Other)
  Sender: FDA-Public Use
  Company Number: US-ASTRAZENECA-2007UW05833

PATIENT
  Age: 591 Month
  Sex: Male
  Weight: 81.6 kg

DRUGS (10)
  1. SEROQUEL [Suspect]
     Indication: SLEEP DISORDER
     Route: 048
     Dates: start: 20030327, end: 20060801
  2. SEROQUEL [Suspect]
     Indication: DEPRESSION
     Route: 048
     Dates: start: 20030327, end: 20060801
  3. RISPERDAL [Concomitant]
     Dates: start: 20040101, end: 20050101
  4. SEROQUEL [Suspect]
     Route: 048
     Dates: start: 20030327, end: 20060301
  5. PAXIL CR [Concomitant]
  6. SEROQUEL [Suspect]
     Route: 048
     Dates: start: 20030327, end: 20060301
  7. NABUMETONE [Concomitant]
     Dates: start: 20030217
  8. PAXIL CR [Concomitant]
     Dosage: 25 AND 37.5 MG DISPENSED
     Dates: start: 20030327
  9. CELEBREX [Concomitant]
     Dates: start: 20030512
  10. ATIVAN [Concomitant]
     Dosage: 1 MG PRN
     Dates: start: 20050603

REACTIONS (4)
  - ARTHROPATHY [None]
  - ACCIDENT AT HOME [None]
  - TYPE 2 DIABETES MELLITUS [None]
  - DIABETES MELLITUS INADEQUATE CONTROL [None]
